FAERS Safety Report 23093054 (Version 2)
Quarter: 2023Q4

REPORT INFORMATION
  Report Type: Report from Study
  Country: CA (occurrence: CA)
  Receive Date: 20231021
  Receipt Date: 20231122
  Transmission Date: 20240110
  Serious: Yes (Other)
  Sender: FDA-Public Use
  Company Number: CA-TEVA-2023-CA-2938124

PATIENT
  Age: 25 Year
  Sex: Male

DRUGS (1)
  1. GEMFIBROZIL [Suspect]
     Active Substance: GEMFIBROZIL
     Indication: Hyperlipidaemia
     Dosage: 1200 MILLIGRAM DAILY;
     Route: 048
     Dates: start: 20230924, end: 20230929

REACTIONS (1)
  - Hepatic enzyme increased [Not Recovered/Not Resolved]

NARRATIVE: CASE EVENT DATE: 20231001
